FAERS Safety Report 9253813 (Version 1)
Quarter: 2013Q2

REPORT INFORMATION
  Report Type: Spontaneous
  Country: US (occurrence: US)
  Receive Date: 20130425
  Receipt Date: 20130425
  Transmission Date: 20140414
  Serious: No
  Sender: FDA-Public Use
  Company Number: US-PFIZER INC-2013125525

PATIENT
  Age: 40 Year
  Sex: Male

DRUGS (7)
  1. SOMAVERT [Suspect]
     Indication: ACROMEGALY
     Dosage: 10 MG, DAILY
     Route: 058
  2. SOMAVERT [Suspect]
     Dosage: 20 MG, UNK
  3. SANDOSTATIN [Suspect]
     Indication: ACROMEGALY
  4. TEKTURNA HCT [Concomitant]
     Dosage: 150-12.5, UNK
  5. METFORMIN [Concomitant]
     Dosage: 500 MG, UNK
  6. SIMVASTATIN [Concomitant]
     Dosage: 5 MG, UNK
  7. ASPIRIN LOW [Concomitant]
     Dosage: 81 MG, UNK

REACTIONS (1)
  - Hormone level abnormal [Unknown]
